FAERS Safety Report 23288156 (Version 2)
Quarter: 2024Q1

REPORT INFORMATION
  Report Type: Other
  Country: US (occurrence: None)
  Receive Date: 20231212
  Receipt Date: 20240108
  Transmission Date: 20240410
  Serious: Yes (Other)
  Sender: FDA-Public Use
  Company Number: US-ROCHE-3465438

PATIENT
  Age: 61 Year
  Sex: Male

DRUGS (7)
  1. VENCLEXTA [Suspect]
     Active Substance: VENETOCLAX
     Indication: Acute leukaemia
     Dosage: TAKE ONE  TABLET BY MOUTH DAILY DAYS 1-7
     Route: 048
  2. VENCLEXTA [Suspect]
     Active Substance: VENETOCLAX
     Dosage: PO DAILY D8-14
     Route: 048
  3. VENCLEXTA [Suspect]
     Active Substance: VENETOCLAX
     Dosage: DAILY D15-21
     Route: 048
  4. VENCLEXTA [Suspect]
     Active Substance: VENETOCLAX
     Dosage: DAILY D22-28
     Route: 048
  5. VENCLEXTA [Suspect]
     Active Substance: VENETOCLAX
     Dosage: DAILY D29-35
     Route: 048
  6. RITUXAN [Suspect]
     Active Substance: RITUXIMAB
     Indication: B-cell prolymphocytic leukaemia
     Dosage: INFUSE 738MG INTRAVENOUSLY ONCE WEEKLY FOR 4 WEEK(S) AS DIRECTED
     Route: 042
  7. RITUXAN [Suspect]
     Active Substance: RITUXIMAB
     Indication: Acute leukaemia
     Dosage: INFUSE 738MG INTRAVENOUSLY ONCE WEEKLY FOR 4 WEEK(S) AS DIRECTED, VIAL
     Route: 042

REACTIONS (7)
  - Off label use [Unknown]
  - Tumour lysis syndrome [Unknown]
  - White blood cell count increased [Recovered/Resolved]
  - Red blood cell count decreased [Unknown]
  - Dysphagia [Unknown]
  - Speech disorder [Unknown]
  - Peripheral paralysis [Unknown]
